FAERS Safety Report 24817021 (Version 1)
Quarter: 2025Q1

REPORT INFORMATION
  Report Type: Spontaneous
  Country: CN (occurrence: CN)
  Receive Date: 20250108
  Receipt Date: 20250108
  Transmission Date: 20250408
  Serious: Yes (Disabling)
  Sender: NOVARTIS
  Company Number: CN-002147023-NVSC2025CN001907

PATIENT
  Age: 79 Year
  Sex: Male

DRUGS (1)
  1. TABRECTA [Suspect]
     Active Substance: CAPMATINIB
     Indication: Lung neoplasm malignant
     Dosage: 400 MG, BID
     Route: 048
     Dates: start: 20250103, end: 20250103

REACTIONS (3)
  - Respiratory failure [Unknown]
  - Dyspnoea [Unknown]
  - Incorrect product administration duration [Unknown]

NARRATIVE: CASE EVENT DATE: 20250103
